FAERS Safety Report 8402258-0 (Version None)
Quarter: 2012Q2

REPORT INFORMATION
  Report Type: 
  Country: None (occurrence: None)
  Receive Date: 20120601
  Receipt Date: 20120523
  Transmission Date: 20120825
  Serious: Yes (Hospitalization, Other)
  Sender: FDA-Public Use
  Company Number: DE-JNJFOC-20120503419

PATIENT
  Sex: Female
  Weight: 74 kg

DRUGS (10)
  1. XARELTO [Suspect]
     Indication: ATRIAL FIBRILLATION
     Route: 048
     Dates: start: 20120208
  2. RAMIPRIL [Concomitant]
  3. ACETYLCYSTEINE [Concomitant]
  4. IBUPROFEN [Concomitant]
  5. PANTOPRAZOLE [Concomitant]
  6. TORSEMIDE [Concomitant]
  7. AMLODIPINE [Concomitant]
  8. EUTHYROX [Concomitant]
  9. LOPRESSOR [Concomitant]
  10. LEVOFLOXACIN [Concomitant]

REACTIONS (3)
  - CEREBROVASCULAR ACCIDENT [None]
  - HYPERTENSION [None]
  - LOWER GASTROINTESTINAL HAEMORRHAGE [None]
